FAERS Safety Report 6904458-5 (Version None)
Quarter: 2010Q3

REPORT INFORMATION
  Report Type: 
  Country: None (occurrence: None)
  Receive Date: 20100804
  Receipt Date: 20090601
  Transmission Date: 20110219
  Serious: No
  Sender: FDA-Public Use
  Company Number: US-PFIZER INC-2009221585

PATIENT
  Sex: Female
  Weight: 72.562 kg

DRUGS (3)
  1. LYRICA [Suspect]
     Indication: NEUROPATHY PERIPHERAL
     Dosage: 100 MG, 2X/DAY
     Route: 048
     Dates: start: 20090520
  2. SIMVASTATIN [Concomitant]
     Dosage: UNK
  3. RELAFEN [Concomitant]
     Dosage: UNK

REACTIONS (1)
  - HEADACHE [None]
